APPROVED DRUG PRODUCT: FLUOXETINE HYDROCHLORIDE
Active Ingredient: FLUOXETINE HYDROCHLORIDE
Strength: EQ 10MG BASE
Dosage Form/Route: CAPSULE;ORAL
Application: A078619 | Product #001 | TE Code: AB1
Applicant: AUROBINDO PHARMA LTD
Approved: Jan 31, 2008 | RLD: No | RS: No | Type: RX